FAERS Safety Report 4543681-4 (Version None)
Quarter: 2004Q4

REPORT INFORMATION
  Report Type: 
  Country: None (occurrence: None)
  Receive Date: 20041229
  Receipt Date: 20041229
  Transmission Date: 20050328
  Serious: Yes (Other)
  Sender: FDA-Public Use
  Company Number: None

PATIENT
  Sex: Female
  Weight: 95.2554 kg

DRUGS (1)
  1. DEPO-PROVERA [Suspect]
     Indication: DYSMENORRHOEA
     Dosage: 3 MONTH SHOT   ONCE   INTRAMUSCU
     Route: 030
     Dates: start: 20040813, end: 20041113

REACTIONS (4)
  - ARTHRALGIA [None]
  - BREAST SWELLING [None]
  - IMPAIRED WORK ABILITY [None]
  - OEDEMA PERIPHERAL [None]
